FAERS Safety Report 10522917 (Version 1)
Quarter: 2014Q4

REPORT INFORMATION
  Report Type: Spontaneous
  Country: US (occurrence: None)
  Receive Date: 20141010
  Receipt Date: 20141010
  Transmission Date: 20150528
  Serious: Yes (Other)
  Sender: FDA-Public Use
  Company Number: 2014COR00086

PATIENT
  Age: 8 Year
  Sex: Male
  Weight: 28.6 kg

DRUGS (2)
  1. METHYLPHENIDATE (METHYLPHENIDATE) (UKNOWN) [Suspect]
     Active Substance: METHYLPHENIDATE
     Indication: ATTENTION DEFICIT/HYPERACTIVITY DISORDER
  2. FLUOXETINE (FLUOXETINE) [Suspect]
     Active Substance: FLUOXETINE HYDROCHLORIDE
     Indication: DEPRESSION

REACTIONS (2)
  - Hallucination, tactile [None]
  - Drug interaction [None]
